FAERS Safety Report 8251106-0 (Version None)
Quarter: 2012Q2

REPORT INFORMATION
  Report Type: 
  Country: None (occurrence: None)
  Receive Date: 20120402
  Receipt Date: 20120327
  Transmission Date: 20120825
  Serious: Yes (Other)
  Sender: FDA-Public Use
  Company Number: US-PFIZER INC-2012079031

PATIENT
  Sex: Female
  Weight: 76.19 kg

DRUGS (15)
  1. LYRICA [Suspect]
     Dosage: 150 MG, 2X/DAY
     Route: 048
  2. ZOLOFT [Suspect]
     Indication: DEPRESSION
     Dosage: 100 MG, DAILY
  3. DIAZEPAM [Suspect]
     Indication: ANXIETY
     Dosage: 10 MG, 2X/DAY
  4. LOVAZA [Concomitant]
     Dosage: UNK
  5. CALCIUM [Concomitant]
     Dosage: UNK
  6. LYRICA [Suspect]
     Indication: FIBROMYALGIA
     Dosage: 50 MG, 2X/DAY
     Route: 048
  7. METHADONE [Concomitant]
     Indication: PAIN
     Dosage: 60 MG, 3X/DAY
  8. VITAMIN D [Concomitant]
     Dosage: UNK
  9. HYDROCODONE [Concomitant]
     Dosage: 10/325 MG UP TO 5-6 TIMES A DAY AT EVERY 4-5 HOURS
  10. ZOLOFT [Suspect]
     Dosage: 100 MG, EVERY TWO NIGHTS
     Dates: end: 20120101
  11. DIAZEPAM [Suspect]
     Indication: SLEEP DISORDER
     Dosage: 10 MG, 3X/DAY
  12. DIAZEPAM [Suspect]
     Indication: NERVOUSNESS
     Dosage: 10 MG, AS NEEDED
  13. COENZYME Q10 [Concomitant]
     Dosage: UNK
  14. LYRICA [Suspect]
     Dosage: 150 MG, DAILY
     Route: 048
  15. ZOLOFT [Suspect]
     Dosage: 100 MG, EVERY OTHER NIGHT

REACTIONS (5)
  - FATIGUE [None]
  - OEDEMA PERIPHERAL [None]
  - MOVEMENT DISORDER [None]
  - JOINT SWELLING [None]
  - RASH PAPULAR [None]
